FAERS Safety Report 8257369-X (Version None)
Quarter: 2012Q1

REPORT INFORMATION
  Report Type: 
  Country: None (occurrence: None)
  Receive Date: 20120330
  Receipt Date: 20120330
  Transmission Date: 20120608
  Serious: No
  Sender: FDA-Public Use
  Company Number: None

PATIENT
  Age: 71 Year
  Sex: Female
  Weight: 61.2356 kg

DRUGS (1)
  1. SOTALOL HCL [Suspect]
     Indication: ATRIAL FIBRILLATION
     Dosage: 40MG. TWICE A DAY  2/28 + 29 + 3/1

REACTIONS (4)
  - NIGHTMARE [None]
  - DIARRHOEA [None]
  - HEART RATE INCREASED [None]
  - ABDOMINAL PAIN UPPER [None]
